FAERS Safety Report 7898013 (Version 2)
Quarter: 2012Q4

REPORT INFORMATION
  Report Type: 
  Country: JP (occurrence: JP)
  Receive Date: 20110413
  Receipt Date: 20120928
  Transmission Date: 20130627
  Serious: Yes (Hospitalization)
  Sender: FDA-Public Use
  Company Number: PHHY2011JP27670

PATIENT
  Age: 60 Year
  Sex: Male
  Weight: 65 kg

DRUGS (1)
  1. DICLOFENAC SODIUM [Suspect]
     Indication: SPINAL COLUMN STENOSIS
     Route: 048

REACTIONS (27)
  - Protein-losing gastroenteropathy [Unknown]
  - Hyponatraemia [Unknown]
  - Malabsorption [Unknown]
  - Malnutrition [Recovered/Resolved]
  - Dehydration [Unknown]
  - Paralysis [Recovering/Resolving]
  - Neuropathy peripheral [Recovering/Resolving]
  - Quadriplegia [Recovering/Resolving]
  - Sensory loss [Recovering/Resolving]
  - Dysarthria [Recovering/Resolving]
  - Gastrointestinal disorder [Unknown]
  - Jejunal stenosis [Unknown]
  - Small intestine ulcer [Unknown]
  - Ileus [Recovering/Resolving]
  - Diverticulitis [Unknown]
  - Dysphagia [Recovered/Resolved]
  - Pyrexia [Unknown]
  - Microcytic anaemia [Recovered/Resolved]
  - Iron deficiency anaemia [Unknown]
  - Abdominal distension [Unknown]
  - Abdominal tenderness [Unknown]
  - Abdominal pain [Recovering/Resolving]
  - Gastrointestinal sounds abnormal [Unknown]
  - Nausea [Unknown]
  - Vomiting [Unknown]
  - Renal impairment [Unknown]
  - Dysphonia [Unknown]
